FAERS Safety Report 5267791-1 (Version None)
Quarter: 2007Q1

REPORT INFORMATION
  Report Type: 
  Country: None (occurrence: None)
  Receive Date: 20070316
  Receipt Date: 20070305
  Transmission Date: 20070707
  Serious: Yes (Death, Hospitalization)
  Sender: FDA-Public Use
  Company Number: US-PFIZER INC-2007017830

PATIENT
  Age: 44 Year
  Sex: Male

DRUGS (2)
  1. RELPAX [Suspect]
     Indication: MIGRAINE
     Dates: start: 20070305, end: 20070305
  2. IMITREX [Concomitant]

REACTIONS (2)
  - ANGIOPATHY [None]
  - CARDIAC ARREST [None]
